FAERS Safety Report 10061497 (Version 2)
Quarter: 2014Q2

REPORT INFORMATION
  Report Type: Spontaneous
  Country: US (occurrence: US)
  Receive Date: 20140407
  Receipt Date: 20140505
  Transmission Date: 20141212
  Serious: Yes (Other)
  Sender: FDA-Public Use
  Company Number: US-ROCHE-1378553

PATIENT
  Sex: Female

DRUGS (3)
  1. XOLAIR [Suspect]
     Indication: ASTHMA
     Route: 065
  2. ALLEGRA [Concomitant]
     Route: 065
  3. ADVAIR [Concomitant]
     Indication: ASTHMA

REACTIONS (3)
  - Anaphylactic reaction [Recovered/Resolved]
  - Chest discomfort [Unknown]
  - Listless [Unknown]
